FAERS Safety Report 6204434-4 (Version None)
Quarter: 2009Q2

REPORT INFORMATION
  Report Type: 
  Country: None (occurrence: None)
  Receive Date: 20090527
  Receipt Date: 20090515
  Transmission Date: 20091009
  Serious: Yes (Hospitalization, Other)
  Sender: FDA-Public Use
  Company Number: FR-PFIZER INC-2009201418

PATIENT
  Age: 55 Year

DRUGS (9)
  1. SALAZOPYRIN [Suspect]
     Indication: RHEUMATOID ARTHRITIS
     Dosage: 1 G, 2X/DAY
     Route: 048
     Dates: start: 20090126, end: 20090301
  2. NEUPOGEN [Suspect]
     Indication: AGRANULOCYTOSIS
     Dosage: UNK
     Dates: start: 20090301
  3. ANTIBIOTICS [Suspect]
     Indication: INFECTION
     Dosage: UNK
     Dates: start: 20090301
  4. ANTIBIOTICS [Suspect]
     Indication: PYREXIA
  5. CORTISONE [Concomitant]
     Indication: RHEUMATOID ARTHRITIS
     Dosage: UNK
  6. FOSAVANCE [Concomitant]
     Indication: OSTEOPOROSIS PROPHYLAXIS
     Dosage: UNK
  7. LEVOTHYROX [Concomitant]
     Dosage: UNK
  8. LIPUR [Concomitant]
     Dosage: UNK
  9. CORTANCYL [Concomitant]
     Indication: RHEUMATOID ARTHRITIS

REACTIONS (4)
  - AGRANULOCYTOSIS [None]
  - HEPATITIS [None]
  - INFECTION [None]
  - PYREXIA [None]
